FAERS Safety Report 17751584 (Version 1)
Quarter: 2020Q2

REPORT INFORMATION
  Report Type: Spontaneous
  Country: US (occurrence: US)
  Receive Date: 20200506
  Receipt Date: 20200506
  Transmission Date: 20200714
  Serious: Yes (Other)
  Sender: FDA-Public Use
  Company Number: None

PATIENT
  Age: 41 Year
  Sex: Male
  Weight: 94.5 kg

DRUGS (4)
  1. OLMESA MEDOX [Concomitant]
  2. COQ10 [Concomitant]
     Active Substance: UBIDECARENONE
  3. MULTIVITAMIN [Concomitant]
     Active Substance: VITAMINS
  4. SUBOXONE [Suspect]
     Active Substance: BUPRENORPHINE HYDROCHLORIDE\NALOXONE HYDROCHLORIDE
     Indication: PAIN
     Dosage: ?          QUANTITY:1 HALF FILM;?
     Route: 060

REACTIONS (5)
  - Chest pain [None]
  - Hyperhidrosis [None]
  - Dyspnoea [None]
  - Product quality issue [None]
  - Nasopharyngitis [None]

NARRATIVE: CASE EVENT DATE: 20200408
